FAERS Safety Report 18740381 (Version 1)
Quarter: 2021Q1

REPORT INFORMATION
  Report Type: Spontaneous
  Country: US (occurrence: US)
  Receive Date: 20210114
  Receipt Date: 20210114
  Transmission Date: 20210419
  Serious: Yes (Hospitalization)
  Sender: FDA-Public Use
  Company Number: None

PATIENT
  Sex: Male
  Weight: 102.4 kg

DRUGS (4)
  1. VINBLASTINE [Suspect]
     Active Substance: VINBLASTINE
  2. SGN?35 (BRENTUXIMAB VEDOTIN) [Concomitant]
     Active Substance: BRENTUXIMAB VEDOTIN
  3. DOXORUBICIN HYDROCHLORIDE. [Concomitant]
     Active Substance: DOXORUBICIN HYDROCHLORIDE
  4. DACARBAZINE. [Concomitant]
     Active Substance: DACARBAZINE

REACTIONS (6)
  - Abdominal distension [None]
  - Constipation [None]
  - Nausea [None]
  - Intestinal pseudo-obstruction [None]
  - Abdominal pain [None]
  - Neutropenia [None]

NARRATIVE: CASE EVENT DATE: 20201228
